FAERS Safety Report 13263180 (Version 5)
Quarter: 2017Q3

REPORT INFORMATION
  Report Type: Report from Study
  Country: US (occurrence: US)
  Receive Date: 20170223
  Receipt Date: 20170824
  Transmission Date: 20171127
  Serious: Yes (Hospitalization, Other)
  Sender: FDA-Public Use
  Company Number: US-GILEAD-2017-0259171

PATIENT
  Age: 67 Year
  Sex: Female
  Weight: 120 kg

DRUGS (4)
  1. SILDENAFIL. [Suspect]
     Active Substance: SILDENAFIL
     Indication: PRODUCT USED FOR UNKNOWN INDICATION
     Route: 065
  2. WARFARIN [Concomitant]
     Active Substance: WARFARIN
  3. COUMADIN [Concomitant]
     Active Substance: WARFARIN SODIUM
  4. AMBRISENTAN [Suspect]
     Active Substance: AMBRISENTAN
     Indication: PULMONARY ARTERIAL HYPERTENSION
     Dosage: 5 MG, QD
     Route: 065
     Dates: start: 20120418

REACTIONS (7)
  - Pulmonary arterial hypertension [Unknown]
  - Respiratory failure [Not Recovered/Not Resolved]
  - Respiratory failure [Recovered/Resolved]
  - Hypotension [Unknown]
  - Cardiac failure congestive [Unknown]
  - Cellulitis [Unknown]
  - Depression [Unknown]
